FAERS Safety Report 17263180 (Version 1)
Quarter: 2020Q1

REPORT INFORMATION
  Report Type: Spontaneous
  Country: US (occurrence: US)
  Receive Date: 20200110
  Receipt Date: 20200110
  Transmission Date: 20200409
  Serious: Yes (Hospitalization)
  Sender: FDA-Public Use
  Company Number: None

PATIENT
  Age: 35 Year
  Sex: Female
  Weight: 221.9 kg

DRUGS (5)
  1. MULTIVITAMIN [Concomitant]
     Active Substance: VITAMINS
     Dates: start: 20200108, end: 20200108
  2. FUROSEMIDE. [Concomitant]
     Active Substance: FUROSEMIDE
     Dates: start: 20200108, end: 20200108
  3. DALBAVANCIN. [Suspect]
     Active Substance: DALBAVANCIN
     Indication: SKIN BACTERIAL INFECTION
     Dosage: ?          OTHER FREQUENCY:ONCE;?
     Route: 041
  4. SPIRONOLACTONE. [Concomitant]
     Active Substance: SPIRONOLACTONE
     Dates: start: 20200108, end: 20200108
  5. ATENOLOL. [Concomitant]
     Active Substance: ATENOLOL
     Dates: start: 20200108, end: 20200108

REACTIONS (3)
  - Infusion related reaction [None]
  - Chest discomfort [None]
  - Muscle spasms [None]

NARRATIVE: CASE EVENT DATE: 20200108
